FAERS Safety Report 13452827 (Version 1)
Quarter: 2017Q2

REPORT INFORMATION
  Report Type: Spontaneous
  Country: CA (occurrence: CA)
  Receive Date: 20170418
  Receipt Date: 20170418
  Transmission Date: 20170830
  Serious: No
  Sender: FDA-Public Use
  Company Number: CA-LPDUSPRD-20160970

PATIENT

DRUGS (1)
  1. DEXIRON (IRON DEXTRAN INJECTION, USP) (0234C) [Suspect]
     Active Substance: IRON DEXTRAN
     Dosage: UNKNOWN
     Route: 065
     Dates: start: 201610

REACTIONS (1)
  - Adverse reaction [Unknown]

NARRATIVE: CASE EVENT DATE: 201610
